FAERS Safety Report 6441595-6 (Version None)
Quarter: 2009Q4

REPORT INFORMATION
  Report Type: 
  Country: None (occurrence: None)
  Receive Date: 20091116
  Receipt Date: 20091102
  Transmission Date: 20100525
  Serious: Yes (Hospitalization)
  Sender: FDA-Public Use
  Company Number: JP-AMGEN-US370043

PATIENT
  Sex: Female
  Weight: 47 kg

DRUGS (8)
  1. ENBREL [Suspect]
     Indication: RHEUMATOID ARTHRITIS
     Route: 058
     Dates: start: 20090706, end: 20091001
  2. RIMATIL [Concomitant]
     Route: 048
     Dates: start: 20010101, end: 20090803
  3. RIMATIL [Concomitant]
     Dosage: NOT SPECIFIED
     Dates: start: 20010101
  4. FERROMIA [Concomitant]
     Route: 048
     Dates: start: 20090304, end: 20091006
  5. GASTER [Concomitant]
     Route: 048
     Dates: start: 20090304, end: 20091006
  6. PROGRAF [Concomitant]
     Route: 048
     Dates: start: 20090406, end: 20091006
  7. VOLTAREN [Concomitant]
     Route: 048
     Dates: start: 20040115, end: 20091006
  8. UNSPECIFIED NON-STEROIDAL ANTI-INFLAMMATORY AGENT [Concomitant]

REACTIONS (1)
  - TUBERCULOUS PLEURISY [None]
